FAERS Safety Report 7093073-1 (Version None)
Quarter: 2010Q4

REPORT INFORMATION
  Report Type: 
  Country: None (occurrence: None)
  Receive Date: 20101110
  Receipt Date: 20101029
  Transmission Date: 20110411
  Serious: Yes (Hospitalization, Other)
  Sender: FDA-Public Use
  Company Number: US-ELI_LILLY_AND_COMPANY-US201010002167

PATIENT
  Sex: Female
  Weight: 169 kg

DRUGS (13)
  1. PEMETREXED [Suspect]
     Indication: NON-SMALL CELL LUNG CANCER
     Dosage: 500 MG/M2, OTHER
     Route: 042
     Dates: start: 20100721
  2. PEMETREXED [Suspect]
     Dosage: 514 MG, OTHER
     Route: 042
     Dates: start: 20100930
  3. CARBOPLATIN [Suspect]
     Indication: NON-SMALL CELL LUNG CANCER
     Dosage: 6 D/F, OTHER
     Route: 042
     Dates: start: 20100721
  4. CARBOPLATIN [Suspect]
     Dosage: 713 MG, OTHER
     Route: 042
     Dates: start: 20100930
  5. AMLODIPINE [Concomitant]
     Dosage: 5 MG, DAILY (1/D)
  6. MIRAPEX [Concomitant]
     Dosage: 0.25 MG, EACH EVENING
  7. FOLIC ACID [Concomitant]
     Dosage: 1 MG, DAILY (1/D)
  8. VIT B12 [Concomitant]
     Indication: PREMEDICATION
     Dates: start: 20100719
  9. METAMUCIL-2 [Concomitant]
  10. COLACE [Concomitant]
     Dosage: 1 D/F, 2/D
  11. AVAPRO [Concomitant]
     Dosage: 300 MG, DAILY (1/D)
  12. SENOKOT [Concomitant]
     Dosage: 17.2 MG, DAILY (1/D)
  13. ZOLOFT [Concomitant]
     Dosage: 50 MG, EACH EVENING

REACTIONS (4)
  - CONSTIPATION [None]
  - DEHYDRATION [None]
  - PYREXIA [None]
  - SYNCOPE [None]
